FAERS Safety Report 15417595 (Version 2)
Quarter: 2018Q4

REPORT INFORMATION
  Report Type: Spontaneous
  Country: US (occurrence: US)
  Receive Date: 20180924
  Receipt Date: 20181231
  Transmission Date: 20190204
  Serious: No
  Sender: FDA-Public Use
  Company Number: US-PFIZER INC-2018376617

PATIENT
  Age: 79 Year
  Sex: Female
  Weight: 55 kg

DRUGS (1)
  1. IBRANCE [Suspect]
     Active Substance: PALBOCICLIB
     Indication: BREAST CANCER FEMALE
     Dosage: 125 MG, CYCLIC (ONCE A DAY FOR 21 DAYS AND OFF 7 DAYS)

REACTIONS (6)
  - Gait disturbance [Unknown]
  - White blood cell count decreased [Unknown]
  - Back pain [Unknown]
  - Arthralgia [Unknown]
  - Rash generalised [Not Recovered/Not Resolved]
  - Full blood count decreased [Unknown]
